FAERS Safety Report 25607679 (Version 1)
Quarter: 2025Q3

REPORT INFORMATION
  Report Type: Spontaneous
  Country: US (occurrence: US)
  Receive Date: 20250725
  Receipt Date: 20250725
  Transmission Date: 20251021
  Serious: No
  Sender: BIOGEN
  Company Number: US-BIOGEN-2023BI01189184

PATIENT
  Age: 62 Year
  Sex: Female

DRUGS (11)
  1. VUMERITY [Suspect]
     Active Substance: DIROXIMEL FUMARATE
     Indication: Multiple sclerosis
     Dosage: TAKE 1 CAPSULE BY MOUTH DAILY WITH DINNER X 7 DAYS,
     Route: 050
  2. VUMERITY [Suspect]
     Active Substance: DIROXIMEL FUMARATE
     Dosage: THEN 2 CAPSULES WITH DINNER X 7 DAYS,
     Route: 050
  3. VUMERITY [Suspect]
     Active Substance: DIROXIMEL FUMARATE
     Dosage: 1 CAPSULE WITH BREAKFAST AND 2 CAPSULES WITH DINNER X 7 DAYS
     Route: 050
  4. VUMERITY [Suspect]
     Active Substance: DIROXIMEL FUMARATE
     Dosage: 2 CAPSULES TWICE DAILY THEREAFTER, TAKE 2 CAPSULES BY MOUTH 2 TIMES DAILY.
     Route: 050
  5. PRAMIPEXOLE DIHYDROCHLORIDE [Concomitant]
     Active Substance: PRAMIPEXOLE DIHYDROCHLORIDE
     Indication: Product used for unknown indication
     Route: 050
  6. TRAZODONE HCL [Concomitant]
     Active Substance: TRAZODONE HYDROCHLORIDE
     Indication: Product used for unknown indication
     Route: 050
  7. ALENDRONATE SODIUM [Concomitant]
     Active Substance: ALENDRONATE SODIUM
     Indication: Product used for unknown indication
     Route: 050
  8. GABAPENTIN [Concomitant]
     Active Substance: GABAPENTIN
     Route: 050
  9. FLUOXETINE HYDROCHLORIDE [Concomitant]
     Active Substance: FLUOXETINE HYDROCHLORIDE
     Indication: Product used for unknown indication
     Route: 050
  10. VITAMIN D3 [Concomitant]
     Active Substance: CHOLECALCIFEROL
     Indication: Product used for unknown indication
     Route: 050
  11. CALCIUM [Concomitant]
     Active Substance: CALCIUM
     Indication: Product used for unknown indication
     Route: 050

REACTIONS (7)
  - Product dose omission issue [Unknown]
  - Product dose omission in error [Unknown]
  - Gastrointestinal disorder [Unknown]
  - Flushing [Unknown]
  - Pruritus [Unknown]
  - Rash [Unknown]
  - Feeling hot [Unknown]

NARRATIVE: CASE EVENT DATE: 20230706
